FAERS Safety Report 18752070 (Version 1)
Quarter: 2021Q1

REPORT INFORMATION
  Report Type: Spontaneous
  Country: QA (occurrence: QA)
  Receive Date: 20210118
  Receipt Date: 20210118
  Transmission Date: 20210419
  Serious: Yes (Other)
  Sender: FDA-Public Use
  Company Number: QA-JUBILANT CADISTA PHARMACEUTICALS-2021JUB00013

PATIENT
  Age: 58 Year
  Sex: Female

DRUGS (1)
  1. ZOLMITRIPTAN. [Suspect]
     Active Substance: ZOLMITRIPTAN
     Indication: MIGRAINE
     Dosage: 2.5 MG, AS NEEDED
     Route: 065

REACTIONS (1)
  - Renal infarct [Recovered/Resolved]
